FAERS Safety Report 10795232 (Version 1)
Quarter: 2015Q1

REPORT INFORMATION
  Report Type: Spontaneous
  Country: US (occurrence: US)
  Receive Date: 20150214
  Receipt Date: 20150214
  Transmission Date: 20150721
  Serious: No
  Sender: FDA-Public Use
  Company Number: US-GLAXOSMITHKLINE-A1058616A

PATIENT

DRUGS (2)
  1. WALGREEN NICOTINE [Suspect]
     Active Substance: NICOTINE
     Route: 062
     Dates: start: 20140127
  2. NICORETTE FRUIT CHILL [Suspect]
     Active Substance: NICOTINE
     Indication: EX-TOBACCO USER

REACTIONS (7)
  - Vomiting [Unknown]
  - Overdose [Unknown]
  - Throat tightness [Unknown]
  - Nausea [Unknown]
  - Hypersensitivity [Unknown]
  - Dyspnoea [Unknown]
  - Malaise [Recovered/Resolved]

NARRATIVE: CASE EVENT DATE: 20140127
